FAERS Safety Report 16817406 (Version 4)
Quarter: 2021Q2

REPORT INFORMATION
  Report Type: Spontaneous
  Country: US (occurrence: US)
  Receive Date: 20190917
  Receipt Date: 20210622
  Transmission Date: 20210716
  Serious: Yes (Hospitalization, Other)
  Sender: FDA-Public Use
  Company Number: US-GILEAD-2019-0428040

PATIENT
  Age: 58 Year
  Sex: Female
  Weight: 90.7 kg

DRUGS (54)
  1. ATRIPLA [Suspect]
     Active Substance: EFAVIRENZ\EMTRICITABINE\TENOFOVIR DISOPROXIL FUMARATE
     Dosage: 600?200?300 MG
     Route: 048
     Dates: start: 201111, end: 20200303
  2. SINGULAIR [Concomitant]
     Active Substance: MONTELUKAST SODIUM
  3. COLACE [Concomitant]
     Active Substance: DOCUSATE SODIUM
  4. VITAMIN C ACID [Concomitant]
     Active Substance: ASCORBIC ACID
  5. SPIRIVA [Concomitant]
     Active Substance: TIOTROPIUM BROMIDE MONOHYDRATE
  6. OSCALVIT D [Concomitant]
  7. DITROPAN [Concomitant]
     Active Substance: OXYBUTYNIN CHLORIDE
  8. ASPIRIN 81 [Concomitant]
     Active Substance: ASPIRIN
  9. METROGEL [Concomitant]
     Active Substance: METRONIDAZOLE
  10. DUONEB [Concomitant]
     Active Substance: ALBUTEROL SULFATE\IPRATROPIUM BROMIDE
  11. HYDROCORTISONE 1% IN ABSORBASE [Concomitant]
     Active Substance: HYDROCORTISONE
  12. AMBIEN [Concomitant]
     Active Substance: ZOLPIDEM TARTRATE
  13. HIBICLENS [Concomitant]
     Active Substance: CHLORHEXIDINE GLUCONATE
  14. ZOFRAN [Concomitant]
     Active Substance: ONDANSETRON HYDROCHLORIDE
  15. VITAMIN D3 [Concomitant]
     Active Substance: CHOLECALCIFEROL
  16. DOCQLACE [Concomitant]
     Active Substance: DOCUSATE SODIUM
  17. VISTARIL [Concomitant]
     Active Substance: HYDROXYZINE PAMOATE
  18. PROMETHAZINE DM [Concomitant]
     Active Substance: DEXTROMETHORPHAN HYDROBROMIDE\PROMETHAZINE HYDROCHLORIDE
  19. ROBITUSSIN COUGH + COLD [Concomitant]
  20. LOMOTIL [LOPERAMIDE HYDROCHLORIDE] [Concomitant]
     Active Substance: LOPERAMIDE HYDROCHLORIDE
  21. CALCIUM CITRATE [Concomitant]
     Active Substance: CALCIUM CITRATE
  22. NORVASC [Concomitant]
     Active Substance: AMLODIPINE BESYLATE
  23. NEURONTIN [Concomitant]
     Active Substance: GABAPENTIN
  24. COMBIVENT RESPIMAT [Concomitant]
     Active Substance: ALBUTEROL SULFATE\IPRATROPIUM BROMIDE
  25. PIROXICAM. [Concomitant]
     Active Substance: PIROXICAM
  26. AFRIN [OXYMETAZOLINE] [Concomitant]
  27. LOVENOX [Concomitant]
     Active Substance: ENOXAPARIN SODIUM
  28. LASIX [Concomitant]
     Active Substance: FUROSEMIDE
  29. FOSAMAX [Concomitant]
     Active Substance: ALENDRONATE SODIUM
  30. CYMBALTA [Concomitant]
     Active Substance: DULOXETINE HYDROCHLORIDE
  31. TOFRANIL?PM [Concomitant]
     Active Substance: IMIPRAMINE PAMOATE
  32. FLAGYL [Concomitant]
     Active Substance: METRONIDAZOLE\METRONIDAZOLE HYDROCHLORIDE
  33. TYLENOL [Concomitant]
     Active Substance: ACETAMINOPHEN
  34. PROVENTIL [Concomitant]
     Active Substance: ALBUTEROL
  35. SOLU?MEDROL [Concomitant]
     Active Substance: METHYLPREDNISOLONE SODIUM SUCCINATE
  36. APRESOLINE HYDROCHLORIDE [Concomitant]
     Active Substance: HYDRALAZINE HYDROCHLORIDE
  37. LIDOCAINE. [Concomitant]
     Active Substance: LIDOCAINE
  38. HYDROXYZINE [Concomitant]
     Active Substance: HYDROXYZINE HYDROCHLORIDE
  39. NAPROXEN. [Concomitant]
     Active Substance: NAPROXEN
  40. SENNA S [Concomitant]
     Active Substance: DOCUSATE SODIUM\SENNA LEAF
  41. ATRIPLA [Suspect]
     Active Substance: EFAVIRENZ\EMTRICITABINE\TENOFOVIR DISOPROXIL FUMARATE
     Indication: HIV INFECTION
     Dosage: 600?200?300 MG
     Route: 048
     Dates: start: 201009, end: 201010
  42. VOLTAREN [DICLOFENAC] [Concomitant]
     Active Substance: DICLOFENAC SODIUM
  43. ULTRAM [Concomitant]
     Active Substance: TRAMADOL HYDROCHLORIDE
  44. DELTASONE [Concomitant]
     Active Substance: PREDNISONE
  45. DULERA [Concomitant]
     Active Substance: FORMOTEROL FUMARATE DIHYDRATE\MOMETASONE FUROATE
  46. HYDROCODONE BITARTRATE AND ACETAMINOPHEN [Concomitant]
     Active Substance: ACETAMINOPHEN\HYDROCODONE BITARTRATE
  47. TERCONAZOLE. [Concomitant]
     Active Substance: TERCONAZOLE
  48. VENLAFAXINE [Concomitant]
     Active Substance: VENLAFAXINE HYDROCHLORIDE
  49. NICODERM CQ [Concomitant]
     Active Substance: NICOTINE
  50. PRINIVIL [Concomitant]
     Active Substance: LISINOPRIL
  51. MOBIC [Concomitant]
     Active Substance: MELOXICAM
  52. ZITHROMAX [Concomitant]
     Active Substance: AZITHROMYCIN DIHYDRATE
  53. CEPACOL ANESTHETIC [Concomitant]
  54. MAXZIDE [Concomitant]
     Active Substance: HYDROCHLOROTHIAZIDE\TRIAMTERENE

REACTIONS (14)
  - Anxiety [Unknown]
  - Rib fracture [Recovered/Resolved]
  - Osteoporosis [Not Recovered/Not Resolved]
  - Multiple fractures [Unknown]
  - Ankle fracture [Recovered/Resolved]
  - Osteoarthritis [Not Recovered/Not Resolved]
  - Bone decalcification [Not Recovered/Not Resolved]
  - Economic problem [Unknown]
  - Chronic kidney disease [Not Recovered/Not Resolved]
  - Anhedonia [Unknown]
  - Emotional distress [Unknown]
  - Acute kidney injury [Not Recovered/Not Resolved]
  - Bone density decreased [Unknown]
  - Pain [Unknown]

NARRATIVE: CASE EVENT DATE: 20140226
